FAERS Safety Report 6147899-9 (Version None)
Quarter: 2009Q2

REPORT INFORMATION
  Report Type: 
  Country: None (occurrence: None)
  Receive Date: 20090402
  Receipt Date: 20081208
  Transmission Date: 20091009
  Serious: No
  Sender: FDA-Public Use
  Company Number: 1000004582

PATIENT
  Age: 62 Year
  Sex: Female

DRUGS (4)
  1. BYSTOLIC [Suspect]
     Indication: BLOOD PRESSURE INCREASED
     Dosage: 5 MG (5 MG, 1 IN 1 D), ORAL; 5 MG (5 MG, 1 IN 1 D), ORAL; 10 MG (10 MG, 1 IN 1 D), ORAL
     Route: 048
     Dates: start: 20081002, end: 20081014
  2. BYSTOLIC [Suspect]
     Indication: BLOOD PRESSURE INCREASED
     Dosage: 5 MG (5 MG, 1 IN 1 D), ORAL; 5 MG (5 MG, 1 IN 1 D), ORAL; 10 MG (10 MG, 1 IN 1 D), ORAL
     Route: 048
     Dates: start: 20081015, end: 20081021
  3. BYSTOLIC [Suspect]
     Indication: BLOOD PRESSURE INCREASED
     Dosage: 5 MG (5 MG, 1 IN 1 D), ORAL; 5 MG (5 MG, 1 IN 1 D), ORAL; 10 MG (10 MG, 1 IN 1 D), ORAL
     Route: 048
     Dates: start: 20081022
  4. TEKTURNA [Concomitant]

REACTIONS (3)
  - ALOPECIA [None]
  - FEELING COLD [None]
  - PALPITATIONS [None]
